FAERS Safety Report 15856852 (Version 1)
Quarter: 2019Q1

REPORT INFORMATION
  Report Type: Spontaneous
  Country: US (occurrence: US)
  Receive Date: 20190117
  Receipt Date: 20190117
  Transmission Date: 20190417
  Serious: Yes (Hospitalization, Other)
  Sender: FDA-Public Use
  Company Number: None

PATIENT
  Age: 33 Year
  Sex: Female
  Weight: 51 kg

DRUGS (3)
  1. KRATOM [Suspect]
     Active Substance: HERBALS\MITRAGYNINE
     Indication: ANXIETY
  2. MARIJUANA [Concomitant]
     Active Substance: CANNABIS SATIVA SUBSP. INDICA TOP
  3. KRATOM [Suspect]
     Active Substance: HERBALS\MITRAGYNINE
     Indication: PAIN
     Route: 048
     Dates: start: 20160701, end: 20190117

REACTIONS (2)
  - Seizure [None]
  - Treatment noncompliance [None]

NARRATIVE: CASE EVENT DATE: 20180722
